FAERS Safety Report 9549849 (Version 1)
Quarter: 2013Q3

REPORT INFORMATION
  Report Type: Report from Study
  Country: EG (occurrence: EG)
  Receive Date: 20130924
  Receipt Date: 20130924
  Transmission Date: 20140515
  Serious: Yes (Other)
  Sender: FDA-Public Use
  Company Number: EG-BAXTER-2013BAX036646

PATIENT
  Sex: Female

DRUGS (4)
  1. ENDOXAN [Suspect]
     Indication: PULMONARY ARTERIAL PRESSURE INCREASED
     Route: 048
  2. WARFARIN [Suspect]
     Indication: PULMONARY ARTERIAL PRESSURE INCREASED
     Route: 065
  3. SILDENAFIL CITRATE [Suspect]
     Indication: PULMONARY ARTERIAL PRESSURE INCREASED
     Route: 065
  4. LOW MOLECULAR WEIGHT HEPARIN [Concomitant]
     Indication: PRODUCT USED FOR UNKNOWN INDICATION
     Route: 065

REACTIONS (3)
  - Maternal exposure before pregnancy [Recovered/Resolved]
  - Exposure during pregnancy [Recovered/Resolved]
  - No adverse event [Recovered/Resolved]
